FAERS Safety Report 17109499 (Version 1)
Quarter: 2019Q4

REPORT INFORMATION
  Report Type: Report from Study
  Country: AU (occurrence: AU)
  Receive Date: 20191204
  Receipt Date: 20191204
  Transmission Date: 20200122
  Serious: No
  Sender: FDA-Public Use
  Company Number: AU-BEH-2019110067

PATIENT
  Age: 60 Year
  Sex: Male
  Weight: 53 kg

DRUGS (5)
  1. HIZENTRA [Suspect]
     Active Substance: HUMAN IMMUNOGLOBULIN G
     Indication: SECONDARY IMMUNODEFICIENCY
     Dosage: 24 GRAM, QMT (GIVEN AS THREE 8 GRAM INFUSIONS EVERY 10 DAYS)
     Route: 058
     Dates: start: 20191128
  2. AMIODARONE [Concomitant]
     Active Substance: AMIODARONE
  3. CANDESARTAN. [Concomitant]
     Active Substance: CANDESARTAN
  4. ATORVASTIN [Concomitant]
     Active Substance: ATORVASTATIN
  5. PERINDOPRIL [Concomitant]
     Active Substance: PERINDOPRIL

REACTIONS (5)
  - Infusion site erythema [Recovering/Resolving]
  - Infusion site paraesthesia [Unknown]
  - Infusion site pain [Recovering/Resolving]
  - Infusion site pruritus [Unknown]
  - Headache [Recovered/Resolved]

NARRATIVE: CASE EVENT DATE: 20191128
